FAERS Safety Report 13358147 (Version 5)
Quarter: 2019Q2

REPORT INFORMATION
  Report Type: Report from Study
  Country: None (occurrence: US)
  Receive Date: 20170322
  Receipt Date: 20190514
  Transmission Date: 20190711
  Serious: Yes (Death, Hospitalization, Other)
  Sender: FDA-Public Use
  Company Number: US-ABBVIE-17K-163-1913946-00

PATIENT
  Age: 53 Year
  Sex: Female
  Weight: 87.17 kg

DRUGS (7)
  1. TRAMADOL. [Concomitant]
     Active Substance: TRAMADOL
     Indication: PAIN
  2. HUMIRA [Suspect]
     Active Substance: ADALIMUMAB
     Indication: CROHN^S DISEASE
     Route: 058
     Dates: start: 2003, end: 201706
  3. LISINOPRIL. [Concomitant]
     Active Substance: LISINOPRIL
     Indication: HYPERTENSION
  4. INSULIN [Concomitant]
     Active Substance: INSULIN NOS
     Indication: TYPE 2 DIABETES MELLITUS
  5. LANTUS [Concomitant]
     Active Substance: INSULIN GLARGINE
     Indication: DIABETES MELLITUS
  6. HYDROCODONE [Concomitant]
     Active Substance: HYDROCODONE
     Indication: PAIN
  7. METFORMIN [Concomitant]
     Active Substance: METFORMIN HYDROCHLORIDE
     Indication: TYPE 2 DIABETES MELLITUS

REACTIONS (25)
  - Neoplasm [Unknown]
  - Speech disorder [Not Recovered/Not Resolved]
  - Neoplasm skin [Fatal]
  - Weight decreased [Not Recovered/Not Resolved]
  - Crohn^s disease [Unknown]
  - Headache [Not Recovered/Not Resolved]
  - Incoherent [Not Recovered/Not Resolved]
  - Neoplasm malignant [Fatal]
  - White blood cell count increased [Not Recovered/Not Resolved]
  - Fatigue [Not Recovered/Not Resolved]
  - Impaired healing [Recovered/Resolved]
  - Bone cancer [Not Recovered/Not Resolved]
  - Ear neoplasm [Unknown]
  - Skin discolouration [Not Recovered/Not Resolved]
  - Skin mass [Not Recovered/Not Resolved]
  - Neoplasm skin [Not Recovered/Not Resolved]
  - Nausea [Not Recovered/Not Resolved]
  - Hepatic cirrhosis [Not Recovered/Not Resolved]
  - Cholelithiasis [Not Recovered/Not Resolved]
  - Ankle fracture [Unknown]
  - Hepatic cancer metastatic [Fatal]
  - Pulmonary thrombosis [Not Recovered/Not Resolved]
  - Exposure to radiation [Unknown]
  - Chest pain [Not Recovered/Not Resolved]
  - Spinal cord neoplasm [Unknown]

NARRATIVE: CASE EVENT DATE: 201609
